FAERS Safety Report 25021590 (Version 1)
Quarter: 2025Q1

REPORT INFORMATION
  Report Type: Other
  Country: IR (occurrence: IR)
  Receive Date: 20250228
  Receipt Date: 20250228
  Transmission Date: 20250408
  Serious: Yes (Disabling, Other)
  Sender: DENTSPLY
  Company Number: IR-DENTSPLY-2025SCDP000040

PATIENT
  Age: 7 Year
  Sex: Female

DRUGS (2)
  1. LIDOCAINE HYDROCHLORIDE AND EPINEPHRINE BITARTRATE [Suspect]
     Active Substance: EPINEPHRINE BITARTRATE\LIDOCAINE HYDROCHLORIDE
     Indication: Dental local anaesthesia
     Route: 004
  2. TOPEX [Concomitant]
     Active Substance: BENZOCAINE
     Indication: Local anaesthesia

REACTIONS (1)
  - Amaurosis [Recovered/Resolved]
